FAERS Safety Report 16358482 (Version 3)
Quarter: 2020Q1

REPORT INFORMATION
  Report Type: Report from Study
  Country: US (occurrence: US)
  Receive Date: 20190527
  Receipt Date: 20200305
  Transmission Date: 20200409
  Serious: Yes (Disabling)
  Sender: FDA-Public Use
  Company Number: US-AMGEN-USANI2019081375

PATIENT
  Age: 25 Year
  Sex: Female

DRUGS (1)
  1. BLINATUMOMAB [Suspect]
     Active Substance: BLINATUMOMAB
     Indication: ACUTE LYMPHOCYTIC LEUKAEMIA
     Dosage: 65 MICROGRAM, QD
     Route: 065
     Dates: start: 20150212

REACTIONS (2)
  - Nerve injury [Unknown]
  - Facial paralysis [Unknown]

NARRATIVE: CASE EVENT DATE: 20150302
